FAERS Safety Report 6865793-2 (Version None)
Quarter: 2010Q3

REPORT INFORMATION
  Report Type: 
  Country: None (occurrence: None)
  Receive Date: 20100721
  Receipt Date: 20080505
  Transmission Date: 20110219
  Serious: Yes (Other)
  Sender: FDA-Public Use
  Company Number: US-PFIZER INC-2008038346

PATIENT
  Sex: Male

DRUGS (5)
  1. CHANTIX [Suspect]
     Indication: SMOKING CESSATION THERAPY
     Route: 048
     Dates: start: 20080424
  2. PLAVIX [Concomitant]
  3. TOPROL-XL [Concomitant]
  4. ZOCOR [Concomitant]
  5. LEXAPRO [Concomitant]

REACTIONS (6)
  - ABNORMAL BEHAVIOUR [None]
  - CRYING [None]
  - FORMICATION [None]
  - HEADACHE [None]
  - SUICIDAL BEHAVIOUR [None]
  - TREMOR [None]
